FAERS Safety Report 9302850 (Version 2)
Quarter: 2013Q2

REPORT INFORMATION
  Report Type: Spontaneous
  Country: US (occurrence: None)
  Receive Date: 20130517
  Receipt Date: 20130531
  Transmission Date: 20140414
  Serious: Yes (Hospitalization)
  Sender: FDA-Public Use
  Company Number: 201304-PR171-0804

PATIENT
  Age: 54 Year
  Sex: Female
  Weight: 91.63 kg

DRUGS (3)
  1. CARFILZOMIB [Suspect]
     Indication: PLASMA CELL MYELOMA
     Route: 042
     Dates: start: 20090610, end: 20100429
  2. Z-PACK(AZITHROMYCIN) [Concomitant]
  3. NARCOTICS(ALL OTHER THERAPEUTIC PRODUCTS) [Concomitant]

REACTIONS (14)
  - Lethargy [None]
  - Pyrexia [None]
  - Mental status changes [None]
  - Cough [None]
  - Unresponsive to stimuli [None]
  - Hypotension [None]
  - Blood pressure systolic decreased [None]
  - Lung infiltration [None]
  - Staphylococcus test positive [None]
  - Sputum culture positive [None]
  - Culture urine positive [None]
  - Respiratory failure [None]
  - Pneumonia staphylococcal [None]
  - Sepsis [None]
